FAERS Safety Report 8623002-8 (Version None)
Quarter: 2012Q3

REPORT INFORMATION
  Report Type: 
  Country: None (occurrence: None)
  Receive Date: 20120827
  Receipt Date: 20120814
  Transmission Date: 20120928
  Serious: Yes (Life-Threatening, Other)
  Sender: FDA-Public Use
  Company Number: BE-JNJFOC-20120808099

PATIENT
  Age: 58 Year

DRUGS (2)
  1. INFLIXIMAB, RECOMBINANT [Suspect]
     Indication: SPONDYLITIS
     Route: 042
     Dates: start: 20050101
  2. INFLIXIMAB, RECOMBINANT [Suspect]
     Route: 042

REACTIONS (4)
  - CEREBRAL ARTERY STENOSIS [None]
  - PARADOXICAL DRUG REACTION [None]
  - DISSEMINATED TUBERCULOSIS [None]
  - TUBERCULOMA OF CENTRAL NERVOUS SYSTEM [None]
